FAERS Safety Report 19924074 (Version 2)
Quarter: 2021Q4

REPORT INFORMATION
  Report Type: Spontaneous
  Country: None (occurrence: GB)
  Receive Date: 20211005
  Receipt Date: 20211102
  Transmission Date: 20220304
  Serious: Yes (Other)
  Sender: FDA-Public Use
  Company Number: GB-ASCEND THERAPEUTICS US, LLC-2120224

PATIENT
  Sex: Female

DRUGS (8)
  1. ESTROGEL [Suspect]
     Active Substance: ESTRADIOL
     Indication: Product used for unknown indication
     Route: 065
  2. ESTROGEL [Suspect]
     Active Substance: ESTRADIOL
  3. ESTRADIOL [Suspect]
     Active Substance: ESTRADIOL
     Route: 065
  4. ESTRADIOL [Suspect]
     Active Substance: ESTRADIOL
     Route: 065
  5. ESTRADIOL [Suspect]
     Active Substance: ESTRADIOL
     Route: 065
  6. ESTRADIOL HEMIHYDRATE [Suspect]
     Active Substance: ESTRADIOL HEMIHYDRATE
     Route: 065
  7. androfem(TESTOSTERONE) [Concomitant]
     Route: 065
  8. ESTROGEL [Suspect]
     Active Substance: ESTRADIOL
     Route: 065

REACTIONS (16)
  - Drug ineffective [None]
  - Suicidal ideation [Unknown]
  - Palpitations [Unknown]
  - Chest pain [Unknown]
  - Fatigue [Unknown]
  - Anxiety [Unknown]
  - Paranoia [Unknown]
  - Dizziness [Unknown]
  - Confusional state [Unknown]
  - Amnesia [Unknown]
  - Urinary tract infection [Unknown]
  - Nausea [Unknown]
  - Overdose [None]
  - Apathy [Unknown]
  - Decreased interest [Unknown]
  - Feeling abnormal [Unknown]
